FAERS Safety Report 12506479 (Version 4)
Quarter: 2018Q4

REPORT INFORMATION
  Report Type: Report from Study
  Country: US (occurrence: US)
  Receive Date: 20160628
  Receipt Date: 20181119
  Transmission Date: 20190204
  Serious: Yes (Death, Hospitalization, Other)
  Sender: FDA-Public Use
  Company Number: US-ACTELION-A-NJ2016-138074

PATIENT
  Age: 67 Year
  Sex: Female

DRUGS (9)
  1. ACETAMINOPHEN. [Concomitant]
     Active Substance: ACETAMINOPHEN
     Dosage: 325 MG, Q4HRS
     Route: 048
  2. PROMETHAZINE [Concomitant]
     Active Substance: PROMETHAZINE\PROMETHAZINE HYDROCHLORIDE
     Dosage: 25 MG/ML, Q4HRS
     Route: 042
  3. OPSUMIT [Suspect]
     Active Substance: MACITENTAN
     Indication: PULMONARY ARTERIAL HYPERTENSION
     Dosage: 10 MG, QD
     Route: 048
     Dates: start: 20160302
  4. AMIODARONE [Concomitant]
     Active Substance: AMIODARONE
     Dosage: 450 MG, UNK
     Route: 042
  5. HYDROCODONE BITARTRATE AND ACETAMINOPHEN [Concomitant]
     Active Substance: ACETAMINOPHEN\HYDROCODONE BITARTRATE
     Dosage: 325 MG - 5 MG
     Route: 048
  6. MORPHINE [Concomitant]
     Active Substance: MORPHINE
     Dosage: 4 MG, Q 4HRS
     Route: 042
  7. NOREPINEPHRINE HCL [Concomitant]
     Dosage: 16 MG, PRN
     Route: 042
  8. ONDANSETRON [Concomitant]
     Active Substance: ONDANSETRON
     Dosage: 4MG/2ML, Q4HRS
     Route: 042
  9. PANTOPRAZOLE [Concomitant]
     Active Substance: PANTOPRAZOLE
     Dosage: 40 MG, QD, 10 ML PUSH
     Route: 042

REACTIONS (21)
  - Mobility decreased [Not Recovered/Not Resolved]
  - Haemoglobin decreased [Unknown]
  - Malnutrition [Unknown]
  - Transfusion [Unknown]
  - Acute kidney injury [Unknown]
  - Anaemia of chronic disease [Unknown]
  - Liver function test abnormal [Unknown]
  - Chronic kidney disease [Unknown]
  - Platelet count decreased [Unknown]
  - Pulmonary arterial hypertension [Fatal]
  - Post procedural complication [Unknown]
  - Obesity [Unknown]
  - Generalised oedema [Unknown]
  - Osteoarthritis [Unknown]
  - Gastrointestinal haemorrhage [Not Recovered/Not Resolved]
  - Asthenia [Unknown]
  - Irritable bowel syndrome [Unknown]
  - Diverticulum [Unknown]
  - Arterial haemorrhage [Unknown]
  - Right ventricular failure [Unknown]
  - Hypertension [Unknown]
